FAERS Safety Report 6669693-2 (Version None)
Quarter: 2010Q2

REPORT INFORMATION
  Report Type: 
  Country: None (occurrence: None)
  Receive Date: 20100402
  Receipt Date: 20090518
  Transmission Date: 20101027
  Serious: Yes (Hospitalization)
  Sender: FDA-Public Use
  Company Number: CZ-JNJFOC-20070801506

PATIENT
  Age: 78 Year
  Sex: Male

DRUGS (18)
  1. DECITABINE (DECITABINE) LYOPHILIZED POWDER [Suspect]
     Indication: ACUTE MYELOID LEUKAEMIA
     Dates: start: 20070726, end: 20070730
  2. ATENOLOL (ATENOLOL) UNSPECIFIED [Concomitant]
  3. TAMSULOSIN (TAMSULOSIN) UNSPECIFIED [Concomitant]
  4. FLUCONAZOL (FLUCONAZOLE) UNSPECIFIED [Concomitant]
  5. COTRIMOXAZOL (BACTRIM /00086101/) UNSPECIFIED [Concomitant]
  6. ATORVASTATIN (ATORVASTATIN) UNSPECIFIED [Concomitant]
  7. SPIRAPRIL (SPIRAPRIL) UNSPECIFIED [Concomitant]
  8. OMEPRAZOL (OMEPRAZOLE) UNSPECIFIED [Concomitant]
  9. DALTEPARIN (DALTEPARIN) UNSPECIFIED [Concomitant]
  10. TENOLOC (ATENOLOL) [Concomitant]
  11. HELICID (OMEPRAZOLE) UNSPECIFIED [Concomitant]
  12. OMNIC (TAMSULOSIN HYDROCHLORIDE) UNSPECIFIED [Concomitant]
  13. ATORIS (ATORVASTATIN) UNSPECIFIED [Concomitant]
  14. MILURIT (ALLOPURINOL) UNSPECIFIED [Concomitant]
  15. CO-TRIMOXAZOLE (CO-TRIMOXAZOLE) UNSPECIFIED [Concomitant]
  16. MYCOMAX (FLUCONAZOLE) [Concomitant]
  17. TANTUM VERDE (BENZYDAMINE HYDROCHLORIDE) UNSPECIFIED [Concomitant]
  18. FRAGMIN (HEPARIN-FRACTION, SODIUM SALT) UNSPECIFIED [Concomitant]

REACTIONS (5)
  - ANAEMIA [None]
  - FEBRILE NEUTROPENIA [None]
  - HERPES SIMPLEX [None]
  - PNEUMONITIS [None]
  - THROMBOCYTOPENIA [None]
